FAERS Safety Report 5322454-9 (Version None)
Quarter: 2007Q2

REPORT INFORMATION
  Report Type: 
  Country: None (occurrence: None)
  Receive Date: 20070220
  Receipt Date: 20070103
  Transmission Date: 20071010
  Serious: No
  Sender: FDA-Public Use
  Company Number: WAES0701USA00430

PATIENT
  Age: 73 Year
  Sex: Female

DRUGS (3)
  1. JANUVIA [Suspect]
     Indication: DIABETES MELLITUS
     Dosage: 50 MG DAILY PO
     Route: 048
     Dates: start: 20061201
  2. ACTOS [Concomitant]
  3. GLUCOVANCE [Concomitant]

REACTIONS (1)
  - MUSCULOSKELETAL STIFFNESS [None]
